FAERS Safety Report 6635717-1 (Version None)
Quarter: 2010Q1

REPORT INFORMATION
  Report Type: 
  Country: None (occurrence: None)
  Receive Date: 20100312
  Receipt Date: 20100312
  Transmission Date: 20100710
  Serious: Yes (Hospitalization)
  Sender: FDA-Public Use
  Company Number: None

PATIENT
  Sex: Female

DRUGS (6)
  1. BENZTROPINE MESYLATE 2MG QUALITEST [Suspect]
     Indication: EXTRAPYRAMIDAL DISORDER
     Dosage: 2MG TID PO
     Route: 048
     Dates: start: 20100304, end: 20100304
  2. HALDOL [Concomitant]
  3. CLONAZEPAM [Concomitant]
  4. METOPROLOOL TARTRATE [Concomitant]
  5. LEVOTHYROXINE SODIUM [Concomitant]
  6. PROPRANOLOL [Concomitant]

REACTIONS (6)
  - BLOOD PRESSURE INCREASED [None]
  - BODY TEMPERATURE INCREASED [None]
  - CONVULSION [None]
  - FLUSHING [None]
  - HEART RATE INCREASED [None]
  - MENTAL STATUS CHANGES [None]
